FAERS Safety Report 6407888-3 (Version None)
Quarter: 2009Q4

REPORT INFORMATION
  Report Type: 
  Country: None (occurrence: None)
  Receive Date: 20091015
  Receipt Date: 20091001
  Transmission Date: 20100525
  Serious: Yes (Hospitalization)
  Sender: FDA-Public Use
  Company Number: 1-20274141

PATIENT
  Sex: 0

DRUGS (1)
  1. AMIODARONE HCL [Suspect]
     Dosage: INTRAVENOUS
     Route: 042

REACTIONS (2)
  - INJECTION SITE DERMATITIS [None]
  - INJECTION SITE NECROSIS [None]
